FAERS Safety Report 20174363 (Version 4)
Quarter: 2022Q4

REPORT INFORMATION
  Report Type: Other
  Country: JP (occurrence: JP)
  Receive Date: 20211213
  Receipt Date: 20221226
  Transmission Date: 20230113
  Serious: Yes (Hospitalization, Other)
  Sender: FDA-Public Use
  Company Number: JP-CHUGAI-2021030130

PATIENT
  Age: 66 Year
  Sex: Female
  Weight: 40 kg

DRUGS (5)
  1. ENTRECTINIB [Suspect]
     Active Substance: ENTRECTINIB
     Indication: Lung adenocarcinoma
     Route: 048
     Dates: start: 20200512, end: 20200722
  2. ENTRECTINIB [Suspect]
     Active Substance: ENTRECTINIB
     Dosage: UNK
     Route: 048
     Dates: start: 20200812, end: 20200918
  3. ENTRECTINIB [Suspect]
     Active Substance: ENTRECTINIB
     Route: 048
     Dates: start: 20200919, end: 20201002
  4. ENTRECTINIB [Suspect]
     Active Substance: ENTRECTINIB
     Route: 048
     Dates: start: 20201003, end: 20211021
  5. ENTRECTINIB [Suspect]
     Active Substance: ENTRECTINIB
     Route: 048
     Dates: start: 20201007, end: 20210101

REACTIONS (6)
  - Dizziness [Recovering/Resolving]
  - Femur fracture [Recovering/Resolving]
  - Humerus fracture [Recovering/Resolving]
  - Left ventricular dysfunction [Recovered/Resolved]
  - Gait disturbance [Recovering/Resolving]
  - Cognitive disorder [Recovering/Resolving]

NARRATIVE: CASE EVENT DATE: 20200722
